FAERS Safety Report 12586670 (Version 1)
Quarter: 2016Q3

REPORT INFORMATION
  Report Type: Spontaneous
  Country: US (occurrence: None)
  Receive Date: 20160722
  Receipt Date: 20160722
  Transmission Date: 20161109
  Serious: Yes (Life-Threatening, Hospitalization)
  Sender: FDA-Public Use
  Company Number: None

PATIENT
  Age: 52 Year
  Sex: Male
  Weight: 84.1 kg

DRUGS (1)
  1. BUPIVACAINE. [Suspect]
     Active Substance: BUPIVACAINE
     Indication: ANAESTHESIA
     Route: 050
     Dates: start: 20160721, end: 20160721

REACTIONS (3)
  - Ventricular fibrillation [None]
  - Seizure [None]
  - Ventricular tachycardia [None]

NARRATIVE: CASE EVENT DATE: 20160721
